FAERS Safety Report 9787902 (Version 2)
Quarter: 2013Q4

REPORT INFORMATION
  Report Type: Spontaneous
  Country: DE (occurrence: DE)
  Receive Date: 20131230
  Receipt Date: 20131230
  Transmission Date: 20140711
  Serious: Yes (Hospitalization, Disabling)
  Sender: FDA-Public Use
  Company Number: DE-BEH-2013039074

PATIENT
  Age: 71 Year
  Sex: Male

DRUGS (7)
  1. PRIVIGEN [Suspect]
     Dosage: INFUSION RATE 2 ML
     Route: 042
     Dates: start: 20130722, end: 20130724
  2. PRIVIGEN [Suspect]
     Indication: CHRONIC INFLAMMATORY DEMYELINATING POLYRADICULONEUROPATHY
  3. PRIVIGEN [Suspect]
  4. CANDESARTAN [Concomitant]
  5. PANTOZOL [Concomitant]
  6. SIMVASTATIN [Concomitant]
  7. METOPROLOL [Concomitant]

REACTIONS (2)
  - Cerebrovascular accident [Not Recovered/Not Resolved]
  - Hemianopia [Not Recovered/Not Resolved]
